FAERS Safety Report 14535524 (Version 1)
Quarter: 2018Q1

REPORT INFORMATION
  Report Type: Spontaneous
  Country: IT (occurrence: IT)
  Receive Date: 20180215
  Receipt Date: 20180215
  Transmission Date: 20180509
  Serious: Yes (Death, Other)
  Sender: FDA-Public Use
  Company Number: IT-UCBSA-2018005397

PATIENT
  Age: 23 Year
  Sex: Female

DRUGS (1)
  1. LEVETIRACETAM. [Suspect]
     Active Substance: LEVETIRACETAM
     Indication: TEMPORAL LOBE EPILEPSY
     Dosage: UNKNOWN DOSE

REACTIONS (4)
  - Sudden unexplained death in epilepsy [Fatal]
  - Pulmonary oedema [Fatal]
  - Generalised tonic-clonic seizure [Unknown]
  - Therapy partial responder [Unknown]
